FAERS Safety Report 18340104 (Version 1)
Quarter: 2020Q4

REPORT INFORMATION
  Report Type: Spontaneous
  Country: CA (occurrence: CA)
  Receive Date: 20201002
  Receipt Date: 20201002
  Transmission Date: 20210113
  Serious: Yes (Other)
  Sender: FDA-Public Use
  Company Number: CA-009507513-2010CAN000333

PATIENT
  Age: 82 Year
  Sex: Male

DRUGS (1)
  1. JANUVIA [Suspect]
     Active Substance: SITAGLIPTIN PHOSPHATE
     Indication: DIABETES MELLITUS
     Dosage: 50 MILLIGRAM, 1 EVERY DAY (QD)
     Route: 048

REACTIONS (4)
  - Rash [Unknown]
  - Rash erythematous [Unknown]
  - Pruritus [Unknown]
  - Blister [Unknown]
